FAERS Safety Report 9611882 (Version 2)
Quarter: 2013Q4

REPORT INFORMATION
  Report Type: Report from Study
  Country: US (occurrence: US)
  Receive Date: 20131010
  Receipt Date: 20131013
  Transmission Date: 20140711
  Serious: Yes (Death)
  Sender: FDA-Public Use
  Company Number: US-ROCHE-1287286

PATIENT
  Sex: Female

DRUGS (2)
  1. XELODA [Suspect]
     Indication: BREAST CANCER METASTATIC
     Dosage: 2 TABLETS
     Route: 048
  2. XELODA [Suspect]
     Indication: BREAST CANCER
     Dosage: 14 DAYS ON AND 7 DAYS OFF
     Route: 048

REACTIONS (1)
  - Pneumonitis [Fatal]
